FAERS Safety Report 9015771 (Version 2)
Quarter: 2014Q3

REPORT INFORMATION
  Report Type: Spontaneous
  Country: JP (occurrence: None)
  Receive Date: 20130102
  Receipt Date: 20140808
  Transmission Date: 20150326
  Serious: Yes (Hospitalization, Other)
  Sender: FDA-Public Use
  Company Number: 2009JP005830

PATIENT
  Age: 42 Year
  Sex: Female
  Weight: 88 kg

DRUGS (43)
  1. SULFAMETHOXAZOLE AND TRIMETHOPRIM [Concomitant]
     Active Substance: SULFAMETHOXAZOLE\TRIMETHOPRIM
  2. MIYA-BM [Concomitant]
     Active Substance: CLOSTRIDIUM BUTYRICUM SPORES STRAIN M-55
  3. WINTERMIN [Concomitant]
     Active Substance: PROMAZINE
  4. BUFFERIN [Concomitant]
     Active Substance: ASPIRIN
  5. ABILIFY [Concomitant]
     Active Substance: ARIPIPRAZOLE
  6. VONAFEC [Concomitant]
     Active Substance: DICLOFENAC SODIUM
  7. NAUZELIN [Concomitant]
     Active Substance: DOMPERIDONE
  8. PL GRAN [Concomitant]
  9. DIPHENHYDRAMINE [Concomitant]
     Active Substance: DIPHENHYDRAMINE
  10. TOYOFAROL [Concomitant]
     Active Substance: ALFACALCIDOL
  11. BONALON [Concomitant]
     Active Substance: ALENDRONATE SODIUM
  12. LEVOTOMIN [Concomitant]
     Active Substance: LEVOMEPROMAZINE
  13. METHYLPREDNISOLONE [Suspect]
     Active Substance: METHYLPREDNISOLONE
     Indication: LUPUS NEPHRITIS
     Route: 041
     Dates: start: 20101015, end: 20101017
  14. ATELEC [Concomitant]
     Active Substance: CILNIDIPINE
  15. SERRAPEPTASE [Concomitant]
     Active Substance: SERRAPEPTASE
  16. FOSMICIN [Concomitant]
     Active Substance: FOSFOMYCIN CALCIUM
  17. PROGRAF [Suspect]
     Active Substance: TACROLIMUS\TACROLIMUS ANHYDROUS
     Indication: LUPUS NEPHRITIS
     Route: 048
     Dates: start: 20080827
  18. PREDNISOLONE. [Suspect]
     Active Substance: PREDNISOLONE
     Indication: LUPUS NEPHRITIS
     Route: 048
     Dates: end: 20100622
  19. PREDNISOLONE SODIUM SUCCINATE [Suspect]
     Active Substance: PREDNISOLONE SODIUM SUCCINATE
     Indication: LUPUS NEPHRITIS
     Dates: start: 20101012, end: 20101015
  20. OMEPRAZOLE. [Concomitant]
     Active Substance: OMEPRAZOLE
  21. ALLOID G [Concomitant]
     Active Substance: SODIUM ALGINATE
  22. LIPITOR [Concomitant]
     Active Substance: ATORVASTATIN CALCIUM
  23. FAMOTIDINE. [Concomitant]
     Active Substance: FAMOTIDINE
  24. LORFENAMIN [Concomitant]
     Active Substance: LOXOPROFEN
  25. MINOMYCIN [Concomitant]
     Active Substance: MINOCYCLINE HYDROCHLORIDE
  26. LIMAS [Concomitant]
     Active Substance: LITHIUM CARBONATE
  27. NELBON [Concomitant]
     Active Substance: NITRAZEPAM
  28. RIZE [Concomitant]
     Active Substance: CLOTIAZEPAM
  29. SOLANTAL [Concomitant]
     Active Substance: TIARAMIDE
  30. SODIUM BICARBONATE. [Concomitant]
     Active Substance: SODIUM BICARBONATE
  31. LONASEN [Concomitant]
     Active Substance: BLONANSERIN
  32. AKINETON [Concomitant]
     Active Substance: BIPERIDEN HYDROCHLORIDE
  33. PHENOBARBITAL. [Concomitant]
     Active Substance: PHENOBARBITAL
  34. BUSCOPAN [Concomitant]
     Active Substance: BUTYLSCOPOLAMINE BROMIDE
  35. DIOVAN [Concomitant]
     Active Substance: VALSARTAN
  36. YAKUBAN [Concomitant]
     Active Substance: FLURBIPROFEN
  37. POVIDONE IODINE [Concomitant]
     Active Substance: POVIDONE-IODINE
  38. FERROMIA [Concomitant]
     Active Substance: FERROUS CITRATE
  39. HALCION [Concomitant]
     Active Substance: TRIAZOLAM
  40. ALESION [Concomitant]
     Active Substance: EPINASTINE HYDROCHLORIDE
  41. HIBERNA [Concomitant]
     Active Substance: PROMETHAZINE HYDROCHLORIDE
  42. ROHYPNOL [Concomitant]
     Active Substance: FLUNITRAZEPAM
  43. ABILIFY [Concomitant]
     Active Substance: ARIPIPRAZOLE

REACTIONS (14)
  - Pruritus [None]
  - Gastritis [None]
  - Pneumonia [None]
  - Diarrhoea [None]
  - Iron deficiency anaemia [None]
  - Enteritis infectious [None]
  - Nasopharyngitis [None]
  - Bronchitis [None]
  - Chronic gastritis [None]
  - Neuropsychiatric lupus [None]
  - Insomnia [None]
  - Metabolic acidosis [None]
  - Condition aggravated [None]
  - Hyperkalaemia [None]

NARRATIVE: CASE EVENT DATE: 20080918
